FAERS Safety Report 4659025-3 (Version None)
Quarter: 2005Q2

REPORT INFORMATION
  Report Type: 
  Country: None (occurrence: None)
  Receive Date: 20050509
  Receipt Date: 20050426
  Transmission Date: 20051028
  Serious: Yes (Life-Threatening)
  Sender: FDA-Public Use
  Company Number: 05P-028-0298946-00

PATIENT
  Age: 35 Year
  Sex: Male

DRUGS (5)
  1. KALETRA [Suspect]
     Indication: HIV INFECTION
     Dosage: 2 IN 1 D, PER ORAL
     Route: 048
  2. VENLAFAXINE HCL [Concomitant]
  3. DAPSONE [Concomitant]
  4. LAMIVUDINE [Concomitant]
  5. TENOFOVIR [Concomitant]

REACTIONS (3)
  - HALLUCINATION [None]
  - HOMICIDAL IDEATION [None]
  - PSYCHOTIC DISORDER [None]
